FAERS Safety Report 22913620 (Version 2)
Quarter: 2023Q4

REPORT INFORMATION
  Report Type: Spontaneous
  Country: US (occurrence: US)
  Receive Date: 20230906
  Receipt Date: 20231206
  Transmission Date: 20240110
  Serious: Yes (Death, Other)
  Sender: FDA-Public Use
  Company Number: US-BRISTOL-MYERS SQUIBB COMPANY-2023-124218

PATIENT
  Age: 73 Year
  Sex: Male

DRUGS (5)
  1. OPDIVO [Suspect]
     Active Substance: NIVOLUMAB
     Indication: Malignant melanoma
     Dosage: STRENGTH AND PRESENTATION OF THE AE : OPDIVO: 2X240 MG, VIALS
     Route: 042
     Dates: end: 20230828
  2. YERVOY [Suspect]
     Active Substance: IPILIMUMAB
     Indication: Malignant melanoma
     Dosage: STRENGTH AND PRESENTATION OF THE AE : YERVOY: 4X50 MG, VIALS
     Route: 042
     Dates: end: 20230828
  3. LISINOPRIL [Concomitant]
     Active Substance: LISINOPRIL
     Indication: Product used for unknown indication
  4. PANTOPRAZOLE SODIUM [Concomitant]
     Active Substance: PANTOPRAZOLE SODIUM
     Indication: Product used for unknown indication
  5. DECADRON [Concomitant]
     Active Substance: DEXAMETHASONE
     Indication: Product used for unknown indication

REACTIONS (2)
  - Metastatic malignant melanoma [Fatal]
  - Off label use [Unknown]

NARRATIVE: CASE EVENT DATE: 20230830
